FAERS Safety Report 25189861 (Version 1)
Quarter: 2025Q2

REPORT INFORMATION
  Report Type: Spontaneous
  Country: FR (occurrence: FR)
  Receive Date: 20250411
  Receipt Date: 20250411
  Transmission Date: 20250716
  Serious: Yes (Other)
  Sender: MYLAN
  Company Number: None

PATIENT
  Age: 69 Year
  Sex: Male
  Weight: 94 kg

DRUGS (92)
  1. NOREPINEPHRINE BITARTRATE [Suspect]
     Active Substance: NOREPINEPHRINE BITARTRATE
     Indication: Vasopressive therapy
     Dates: start: 20250305, end: 20250305
  2. NOREPINEPHRINE BITARTRATE [Suspect]
     Active Substance: NOREPINEPHRINE BITARTRATE
     Route: 042
     Dates: start: 20250305, end: 20250305
  3. NOREPINEPHRINE BITARTRATE [Suspect]
     Active Substance: NOREPINEPHRINE BITARTRATE
     Route: 042
     Dates: start: 20250305, end: 20250305
  4. NOREPINEPHRINE BITARTRATE [Suspect]
     Active Substance: NOREPINEPHRINE BITARTRATE
     Dates: start: 20250305, end: 20250305
  5. CEFAZOLIN SODIUM [Suspect]
     Active Substance: CEFAZOLIN SODIUM
     Indication: Antibiotic prophylaxis
     Dates: start: 20250305, end: 20250305
  6. CEFAZOLIN SODIUM [Suspect]
     Active Substance: CEFAZOLIN SODIUM
     Dates: start: 20250305, end: 20250305
  7. CEFAZOLIN SODIUM [Suspect]
     Active Substance: CEFAZOLIN SODIUM
     Route: 042
     Dates: start: 20250305, end: 20250305
  8. CEFAZOLIN SODIUM [Suspect]
     Active Substance: CEFAZOLIN SODIUM
     Route: 042
     Dates: start: 20250305, end: 20250305
  9. CEFAZOLIN SODIUM [Suspect]
     Active Substance: CEFAZOLIN SODIUM
     Dates: start: 20250305, end: 20250305
  10. CEFAZOLIN SODIUM [Suspect]
     Active Substance: CEFAZOLIN SODIUM
     Dates: start: 20250305, end: 20250305
  11. CEFAZOLIN SODIUM [Suspect]
     Active Substance: CEFAZOLIN SODIUM
     Route: 042
     Dates: start: 20250305, end: 20250305
  12. CEFAZOLIN SODIUM [Suspect]
     Active Substance: CEFAZOLIN SODIUM
     Route: 042
     Dates: start: 20250305, end: 20250305
  13. CISATRACURIUM [Suspect]
     Active Substance: CISATRACURIUM
     Indication: Anaesthesia
     Dates: start: 20250305, end: 20250305
  14. CISATRACURIUM [Suspect]
     Active Substance: CISATRACURIUM
     Route: 042
     Dates: start: 20250305, end: 20250305
  15. CISATRACURIUM [Suspect]
     Active Substance: CISATRACURIUM
     Route: 042
     Dates: start: 20250305, end: 20250305
  16. CISATRACURIUM [Suspect]
     Active Substance: CISATRACURIUM
     Dates: start: 20250305, end: 20250305
  17. SUFENTANIL CITRATE [Suspect]
     Active Substance: SUFENTANIL CITRATE
     Indication: Anaesthesia
     Dates: start: 20250305, end: 20250305
  18. SUFENTANIL CITRATE [Suspect]
     Active Substance: SUFENTANIL CITRATE
     Route: 042
     Dates: start: 20250305, end: 20250305
  19. SUFENTANIL CITRATE [Suspect]
     Active Substance: SUFENTANIL CITRATE
     Route: 042
     Dates: start: 20250305, end: 20250305
  20. SUFENTANIL CITRATE [Suspect]
     Active Substance: SUFENTANIL CITRATE
     Dates: start: 20250305, end: 20250305
  21. PROPOFOL [Suspect]
     Active Substance: PROPOFOL
     Indication: Anaesthesia
     Dates: start: 20250305, end: 20250305
  22. PROPOFOL [Suspect]
     Active Substance: PROPOFOL
     Route: 042
     Dates: start: 20250305, end: 20250305
  23. PROPOFOL [Suspect]
     Active Substance: PROPOFOL
     Route: 042
     Dates: start: 20250305, end: 20250305
  24. PROPOFOL [Suspect]
     Active Substance: PROPOFOL
     Dates: start: 20250305, end: 20250305
  25. VIALEBEX [Suspect]
     Active Substance: ALBUMIN HUMAN
     Indication: Haemorrhage
     Dates: start: 20250305
  26. VIALEBEX [Suspect]
     Active Substance: ALBUMIN HUMAN
     Dates: start: 20250305
  27. VIALEBEX [Suspect]
     Active Substance: ALBUMIN HUMAN
     Route: 042
     Dates: start: 20250305
  28. VIALEBEX [Suspect]
     Active Substance: ALBUMIN HUMAN
     Route: 042
     Dates: start: 20250305
  29. VIALEBEX [Suspect]
     Active Substance: ALBUMIN HUMAN
     Dates: start: 20250305, end: 20250305
  30. VIALEBEX [Suspect]
     Active Substance: ALBUMIN HUMAN
     Dates: start: 20250305, end: 20250305
  31. VIALEBEX [Suspect]
     Active Substance: ALBUMIN HUMAN
     Route: 042
     Dates: start: 20250305, end: 20250305
  32. VIALEBEX [Suspect]
     Active Substance: ALBUMIN HUMAN
     Route: 042
     Dates: start: 20250305, end: 20250305
  33. OCTAPLEX [Suspect]
     Active Substance: COAGULATION FACTOR IX HUMAN\COAGULATION FACTOR VII HUMAN\COAGULATION FACTOR X HUMAN\PROTEIN C\PROTEI
     Indication: Haemorrhage
     Dates: start: 20250305, end: 20250305
  34. OCTAPLEX [Suspect]
     Active Substance: COAGULATION FACTOR IX HUMAN\COAGULATION FACTOR VII HUMAN\COAGULATION FACTOR X HUMAN\PROTEIN C\PROTEI
     Dates: start: 20250305, end: 20250305
  35. OCTAPLEX [Suspect]
     Active Substance: COAGULATION FACTOR IX HUMAN\COAGULATION FACTOR VII HUMAN\COAGULATION FACTOR X HUMAN\PROTEIN C\PROTEI
     Route: 042
     Dates: start: 20250305, end: 20250305
  36. OCTAPLEX [Suspect]
     Active Substance: COAGULATION FACTOR IX HUMAN\COAGULATION FACTOR VII HUMAN\COAGULATION FACTOR X HUMAN\PROTEIN C\PROTEI
     Route: 042
     Dates: start: 20250305, end: 20250305
  37. OCTAPLEX [Suspect]
     Active Substance: COAGULATION FACTOR IX HUMAN\COAGULATION FACTOR VII HUMAN\COAGULATION FACTOR X HUMAN\PROTEIN C\PROTEI
     Dates: start: 20250305, end: 20250305
  38. OCTAPLEX [Suspect]
     Active Substance: COAGULATION FACTOR IX HUMAN\COAGULATION FACTOR VII HUMAN\COAGULATION FACTOR X HUMAN\PROTEIN C\PROTEI
     Dates: start: 20250305, end: 20250305
  39. OCTAPLEX [Suspect]
     Active Substance: COAGULATION FACTOR IX HUMAN\COAGULATION FACTOR VII HUMAN\COAGULATION FACTOR X HUMAN\PROTEIN C\PROTEI
     Route: 042
     Dates: start: 20250305, end: 20250305
  40. OCTAPLEX [Suspect]
     Active Substance: COAGULATION FACTOR IX HUMAN\COAGULATION FACTOR VII HUMAN\COAGULATION FACTOR X HUMAN\PROTEIN C\PROTEI
     Route: 042
     Dates: start: 20250305, end: 20250305
  41. CLOTTAFACT [Suspect]
     Active Substance: FIBRINOGEN HUMAN
     Indication: Haemorrhage
     Dates: start: 20250305, end: 20250305
  42. CLOTTAFACT [Suspect]
     Active Substance: FIBRINOGEN HUMAN
     Dates: start: 20250305, end: 20250305
  43. CLOTTAFACT [Suspect]
     Active Substance: FIBRINOGEN HUMAN
     Route: 042
     Dates: start: 20250305, end: 20250305
  44. CLOTTAFACT [Suspect]
     Active Substance: FIBRINOGEN HUMAN
     Route: 042
     Dates: start: 20250305, end: 20250305
  45. CLOTTAFACT [Suspect]
     Active Substance: FIBRINOGEN HUMAN
     Dates: start: 20250305, end: 20250305
  46. CLOTTAFACT [Suspect]
     Active Substance: FIBRINOGEN HUMAN
     Dates: start: 20250305, end: 20250305
  47. CLOTTAFACT [Suspect]
     Active Substance: FIBRINOGEN HUMAN
     Route: 042
     Dates: start: 20250305, end: 20250305
  48. CLOTTAFACT [Suspect]
     Active Substance: FIBRINOGEN HUMAN
     Route: 042
     Dates: start: 20250305, end: 20250305
  49. TACHOSIL [Suspect]
     Active Substance: FIBRINOGEN HUMAN\HUMAN THROMBIN
     Indication: Haemorrhage
     Dates: start: 20250305, end: 20250305
  50. TACHOSIL [Suspect]
     Active Substance: FIBRINOGEN HUMAN\HUMAN THROMBIN
     Route: 026
     Dates: start: 20250305, end: 20250305
  51. TACHOSIL [Suspect]
     Active Substance: FIBRINOGEN HUMAN\HUMAN THROMBIN
     Route: 026
     Dates: start: 20250305, end: 20250305
  52. TACHOSIL [Suspect]
     Active Substance: FIBRINOGEN HUMAN\HUMAN THROMBIN
     Dates: start: 20250305, end: 20250305
  53. HEPARIN SODIUM [Suspect]
     Active Substance: HEPARIN SODIUM
     Indication: Extracorporeal circulation
     Dates: start: 20250305
  54. HEPARIN SODIUM [Suspect]
     Active Substance: HEPARIN SODIUM
     Route: 042
     Dates: start: 20250305
  55. HEPARIN SODIUM [Suspect]
     Active Substance: HEPARIN SODIUM
     Route: 042
     Dates: start: 20250305
  56. HEPARIN SODIUM [Suspect]
     Active Substance: HEPARIN SODIUM
     Dates: start: 20250305
  57. PROTAMINE [Suspect]
     Active Substance: PROTAMINE
     Indication: Heparin neutralisation therapy
     Dates: start: 20250305, end: 20250305
  58. PROTAMINE [Suspect]
     Active Substance: PROTAMINE
     Route: 042
     Dates: start: 20250305, end: 20250305
  59. PROTAMINE [Suspect]
     Active Substance: PROTAMINE
     Route: 042
     Dates: start: 20250305, end: 20250305
  60. PROTAMINE [Suspect]
     Active Substance: PROTAMINE
     Dates: start: 20250305, end: 20250305
  61. MIDAZOLAM HYDROCHLORIDE [Suspect]
     Active Substance: MIDAZOLAM HYDROCHLORIDE
     Indication: Anaesthesia
     Dates: start: 20250305, end: 20250305
  62. MIDAZOLAM HYDROCHLORIDE [Suspect]
     Active Substance: MIDAZOLAM HYDROCHLORIDE
     Route: 042
     Dates: start: 20250305, end: 20250305
  63. MIDAZOLAM HYDROCHLORIDE [Suspect]
     Active Substance: MIDAZOLAM HYDROCHLORIDE
     Route: 042
     Dates: start: 20250305, end: 20250305
  64. MIDAZOLAM HYDROCHLORIDE [Suspect]
     Active Substance: MIDAZOLAM HYDROCHLORIDE
     Dates: start: 20250305, end: 20250305
  65. TRANEXAMIC ACID [Suspect]
     Active Substance: TRANEXAMIC ACID
     Indication: Haemorrhage prophylaxis
     Dates: start: 20250305, end: 20250305
  66. TRANEXAMIC ACID [Suspect]
     Active Substance: TRANEXAMIC ACID
     Route: 042
     Dates: start: 20250305, end: 20250305
  67. TRANEXAMIC ACID [Suspect]
     Active Substance: TRANEXAMIC ACID
     Route: 042
     Dates: start: 20250305, end: 20250305
  68. TRANEXAMIC ACID [Suspect]
     Active Substance: TRANEXAMIC ACID
     Dates: start: 20250305, end: 20250305
  69. KETAMINE [Suspect]
     Active Substance: KETAMINE
     Indication: Anaesthesia
     Dates: start: 20250305, end: 20250305
  70. KETAMINE [Suspect]
     Active Substance: KETAMINE
     Route: 042
     Dates: start: 20250305, end: 20250305
  71. KETAMINE [Suspect]
     Active Substance: KETAMINE
     Route: 042
     Dates: start: 20250305, end: 20250305
  72. KETAMINE [Suspect]
     Active Substance: KETAMINE
     Dates: start: 20250305, end: 20250305
  73. ETOMIDATE [Suspect]
     Active Substance: ETOMIDATE
     Indication: Anaesthesia
     Dates: start: 20250305, end: 20250305
  74. ETOMIDATE [Suspect]
     Active Substance: ETOMIDATE
     Route: 042
     Dates: start: 20250305, end: 20250305
  75. ETOMIDATE [Suspect]
     Active Substance: ETOMIDATE
     Route: 042
     Dates: start: 20250305, end: 20250305
  76. ETOMIDATE [Suspect]
     Active Substance: ETOMIDATE
     Dates: start: 20250305, end: 20250305
  77. CALCIUM CHLORIDE\MAGNESIUM CHLORIDE\MALIC ACID\POTASSIUM CHLORIDE\SODI [Suspect]
     Active Substance: CALCIUM CHLORIDE\MAGNESIUM CHLORIDE\MALIC ACID\POTASSIUM CHLORIDE\SODIUM ACETATE\SODIUM CHLORIDE
     Indication: Blood volume expansion
     Dates: start: 20250305, end: 20250305
  78. CALCIUM CHLORIDE\MAGNESIUM CHLORIDE\MALIC ACID\POTASSIUM CHLORIDE\SODI [Suspect]
     Active Substance: CALCIUM CHLORIDE\MAGNESIUM CHLORIDE\MALIC ACID\POTASSIUM CHLORIDE\SODIUM ACETATE\SODIUM CHLORIDE
     Route: 042
     Dates: start: 20250305, end: 20250305
  79. CALCIUM CHLORIDE\MAGNESIUM CHLORIDE\MALIC ACID\POTASSIUM CHLORIDE\SODI [Suspect]
     Active Substance: CALCIUM CHLORIDE\MAGNESIUM CHLORIDE\MALIC ACID\POTASSIUM CHLORIDE\SODIUM ACETATE\SODIUM CHLORIDE
     Route: 042
     Dates: start: 20250305, end: 20250305
  80. CALCIUM CHLORIDE\MAGNESIUM CHLORIDE\MALIC ACID\POTASSIUM CHLORIDE\SODI [Suspect]
     Active Substance: CALCIUM CHLORIDE\MAGNESIUM CHLORIDE\MALIC ACID\POTASSIUM CHLORIDE\SODIUM ACETATE\SODIUM CHLORIDE
     Dates: start: 20250305, end: 20250305
  81. UMULINE [Suspect]
     Active Substance: INSULIN HUMAN
     Indication: Hyperglycaemia
     Dates: start: 20250305, end: 20250305
  82. UMULINE [Suspect]
     Active Substance: INSULIN HUMAN
     Route: 058
     Dates: start: 20250305, end: 20250305
  83. UMULINE [Suspect]
     Active Substance: INSULIN HUMAN
     Route: 058
     Dates: start: 20250305, end: 20250305
  84. UMULINE [Suspect]
     Active Substance: INSULIN HUMAN
     Dates: start: 20250305, end: 20250305
  85. PHENYLEPHRINE HYDROCHLORIDE\PREDNISOLONE ACETATE\SULFACETAMIDE SODIUM [Suspect]
     Active Substance: PHENYLEPHRINE HYDROCHLORIDE\PREDNISOLONE ACETATE\SULFACETAMIDE SODIUM
     Indication: Heparin neutralisation therapy
     Dates: start: 20250305, end: 20250305
  86. PHENYLEPHRINE HYDROCHLORIDE\PREDNISOLONE ACETATE\SULFACETAMIDE SODIUM [Suspect]
     Active Substance: PHENYLEPHRINE HYDROCHLORIDE\PREDNISOLONE ACETATE\SULFACETAMIDE SODIUM
     Route: 042
     Dates: start: 20250305, end: 20250305
  87. PHENYLEPHRINE HYDROCHLORIDE\PREDNISOLONE ACETATE\SULFACETAMIDE SODIUM [Suspect]
     Active Substance: PHENYLEPHRINE HYDROCHLORIDE\PREDNISOLONE ACETATE\SULFACETAMIDE SODIUM
     Route: 042
     Dates: start: 20250305, end: 20250305
  88. PHENYLEPHRINE HYDROCHLORIDE\PREDNISOLONE ACETATE\SULFACETAMIDE SODIUM [Suspect]
     Active Substance: PHENYLEPHRINE HYDROCHLORIDE\PREDNISOLONE ACETATE\SULFACETAMIDE SODIUM
     Dates: start: 20250305, end: 20250305
  89. DEXAMETHASONE [Suspect]
     Active Substance: DEXAMETHASONE
     Indication: Prophylaxis of nausea and vomiting
     Dates: start: 20250305, end: 20250305
  90. DEXAMETHASONE [Suspect]
     Active Substance: DEXAMETHASONE
     Route: 042
     Dates: start: 20250305, end: 20250305
  91. DEXAMETHASONE [Suspect]
     Active Substance: DEXAMETHASONE
     Route: 042
     Dates: start: 20250305, end: 20250305
  92. DEXAMETHASONE [Suspect]
     Active Substance: DEXAMETHASONE
     Dates: start: 20250305, end: 20250305

REACTIONS (1)
  - Rash maculo-papular [Recovered/Resolved]

NARRATIVE: CASE EVENT DATE: 20250305
